FAERS Safety Report 12302263 (Version 1)
Quarter: 2016Q2

REPORT INFORMATION
  Report Type: Spontaneous
  Country: US (occurrence: US)
  Receive Date: 20160425
  Receipt Date: 20160425
  Transmission Date: 20160815
  Serious: No
  Sender: FDA-Public Use
  Company Number: US-EMD SERONO-8078302

PATIENT
  Sex: Male

DRUGS (3)
  1. SEROSTIM [Suspect]
     Active Substance: SOMATROPIN
  2. SEROSTIM [Suspect]
     Active Substance: SOMATROPIN
  3. SEROSTIM [Suspect]
     Active Substance: SOMATROPIN
     Indication: PRODUCT USED FOR UNKNOWN INDICATION
     Dates: start: 2014

REACTIONS (8)
  - Pyrexia [Unknown]
  - Joint injury [Unknown]
  - Psychomotor hyperactivity [Unknown]
  - Decreased appetite [Recovered/Resolved]
  - Blood cortisol decreased [Unknown]
  - Weight decreased [Unknown]
  - Chills [Unknown]
  - Irritability [Unknown]

NARRATIVE: CASE EVENT DATE: 2015
